FAERS Safety Report 4431724-8 (Version None)
Quarter: 2004Q3

REPORT INFORMATION
  Report Type: 
  Country: None (occurrence: None)
  Receive Date: 20040820
  Receipt Date: 20040820
  Transmission Date: 20050211
  Serious: No
  Sender: FDA-Public Use
  Company Number: None

PATIENT
  Sex: Female

DRUGS (1)
  1. CARDIZEM CD [Suspect]
     Indication: HYPERTENSION
     Dosage: 180 MG PO QD
     Route: 048

REACTIONS (2)
  - ABDOMINAL DISCOMFORT [None]
  - PHARMACEUTICAL PRODUCT COMPLAINT [None]
